FAERS Safety Report 8142200-3 (Version None)
Quarter: 2012Q1

REPORT INFORMATION
  Report Type: 
  Country: None (occurrence: None)
  Receive Date: 20120216
  Receipt Date: 20111206
  Transmission Date: 20120608
  Serious: Yes (Hospitalization)
  Sender: FDA-Public Use
  Company Number: BE-ROCHE-1019757

PATIENT
  Age: 74 Year
  Sex: Female

DRUGS (7)
  1. LASIX [Concomitant]
     Dates: start: 20110301
  2. CITALOPRAM HYDROBROMIDE [Concomitant]
     Dates: start: 20000101
  3. PANTOPRAZOLE [Concomitant]
     Dates: start: 20090801
  4. VEMURAFENIB [Suspect]
     Indication: METASTATIC MALIGNANT MELANOMA
     Dosage: DATE OF LAST DOSE PRIOR TO SAE: 01 DEC 2011
     Route: 048
     Dates: start: 20111109, end: 20111123
  5. VEMURAFENIB [Interacting]
     Route: 048
     Dates: start: 20111130, end: 20111202
  6. ACENOCOUMAROL [Interacting]
     Indication: PRODUCT USED FOR UNKNOWN INDICATION
     Dates: start: 20020401, end: 20111123
  7. ALDACTONE [Concomitant]
     Dates: start: 20111117

REACTIONS (2)
  - FALL [None]
  - OVERDOSE [None]
